FAERS Safety Report 4473101-X (Version None)
Quarter: 2004Q4

REPORT INFORMATION
  Report Type: 
  Country: None (occurrence: None)
  Receive Date: 20041007
  Receipt Date: 20041007
  Transmission Date: 20050328
  Serious: No
  Sender: FDA-Public Use
  Company Number: None

PATIENT
  Sex: Male

DRUGS (6)
  1. VIREAD [Suspect]
     Indication: HIV INFECTION
     Dosage: 300 MG PO QD
     Route: 048
     Dates: start: 20020916, end: 20041006
  2. ABC [Concomitant]
  3. SEPTRA DS [Concomitant]
  4. RESCRIPTOR [Concomitant]
  5. 3TC [Concomitant]
  6. ACYCLOVIR [Concomitant]

REACTIONS (1)
  - BLOOD CREATININE INCREASED [None]
